FAERS Safety Report 10459038 (Version 2)
Quarter: 2014Q3

REPORT INFORMATION
  Report Type: Spontaneous
  Country: US (occurrence: None)
  Receive Date: 20140915
  Receipt Date: 20140929
  Transmission Date: 20150326
  Serious: No
  Sender: FDA-Public Use
  Company Number: 2014-US-011362

PATIENT
  Age: 35 Year
  Sex: Female

DRUGS (2)
  1. MAXALT [Suspect]
     Active Substance: RIZATRIPTAN BENZOATE
     Indication: MIGRAINE
  2. XYREM [Suspect]
     Active Substance: SODIUM OXYBATE
     Indication: NARCOLEPSY
     Dosage: 4 G, FIRST DOSE, ORAL
     Route: 048
     Dates: start: 201305, end: 2013

REACTIONS (4)
  - Migraine [None]
  - Hypersensitivity [None]
  - Wrong technique in drug usage process [None]
  - Poor quality sleep [None]

NARRATIVE: CASE EVENT DATE: 201409
